FAERS Safety Report 17939374 (Version 1)
Quarter: 2020Q2

REPORT INFORMATION
  Report Type: Spontaneous
  Country: DE (occurrence: DE)
  Receive Date: 20200624
  Receipt Date: 20200624
  Transmission Date: 20200714
  Serious: Yes (Other)
  Sender: FDA-Public Use
  Company Number: DE-BRACCO-2020DE02453

PATIENT
  Age: 59 Year
  Sex: Female
  Weight: 76 kg

DRUGS (6)
  1. PROHANCE [Suspect]
     Active Substance: GADOTERIDOL
     Indication: MAGNETIC RESONANCE IMAGING
     Dosage: ACCORDING TO THE BODYWEIGHT, SINGLE
     Route: 042
     Dates: start: 2016, end: 2016
  2. GADOVIST [Suspect]
     Active Substance: GADOBUTROL
     Indication: MAGNETIC RESONANCE IMAGING
     Dosage: ACCORDING TO THE BODYWEIGHT, SINGLE
     Route: 042
     Dates: start: 2018, end: 2018
  3. GADOLINIUM [Suspect]
     Active Substance: GADOLINIUM
     Indication: MAGNETIC RESONANCE IMAGING
     Dosage: ACCORDING TO THE BODYWEIGHT, SINGLE
     Route: 042
     Dates: start: 2013, end: 2013
  4. GADOLINIUM [Suspect]
     Active Substance: GADOLINIUM
     Indication: MAGNETIC RESONANCE IMAGING
     Dosage: ACCORDING TO THE BODYWEIGHT, SINGLE
     Route: 042
     Dates: start: 2014, end: 2014
  5. PROHANCE [Suspect]
     Active Substance: GADOTERIDOL
     Indication: MAGNETIC RESONANCE IMAGING
     Dosage: UNK, SINGLE, ACCORDING TO BODY WEIGHT
     Route: 042
     Dates: start: 2017, end: 2017
  6. GADOLINIUM [Suspect]
     Active Substance: GADOLINIUM
     Indication: MAGNETIC RESONANCE IMAGING
     Dosage: ACCORDING TO THE BODYWEIGHT, SINGLE
     Route: 042
     Dates: start: 2015, end: 2015

REACTIONS (17)
  - Mobility decreased [Not Recovered/Not Resolved]
  - Blood pressure increased [Not Recovered/Not Resolved]
  - Insomnia [Unknown]
  - Fibrosis [Not Recovered/Not Resolved]
  - Paraesthesia [Not Recovered/Not Resolved]
  - Pain in extremity [Not Recovered/Not Resolved]
  - Gait disturbance [Not Recovered/Not Resolved]
  - Ocular discomfort [Unknown]
  - Sensory disturbance [Not Recovered/Not Resolved]
  - Panic attack [Not Recovered/Not Resolved]
  - Fall [Not Recovered/Not Resolved]
  - Adverse reaction [Not Recovered/Not Resolved]
  - Disturbance in attention [Unknown]
  - Palpitations [Not Recovered/Not Resolved]
  - Hyperhidrosis [Unknown]
  - Restless legs syndrome [Unknown]
  - Dyspnoea [Not Recovered/Not Resolved]

NARRATIVE: CASE EVENT DATE: 2015
